FAERS Safety Report 14647925 (Version 1)
Quarter: 2018Q1

REPORT INFORMATION
  Report Type: Spontaneous
  Country: US (occurrence: US)
  Receive Date: 20180316
  Receipt Date: 20180316
  Transmission Date: 20180509
  Serious: Yes (Other)
  Sender: FDA-Public Use
  Company Number: US-BIOVITRUM-2018US0245

PATIENT
  Age: 18 Year
  Sex: Female

DRUGS (2)
  1. ANAKINRA [Suspect]
     Active Substance: ANAKINRA
     Indication: JUVENILE IDIOPATHIC ARTHRITIS
  2. ANAKINRA [Suspect]
     Active Substance: ANAKINRA
     Indication: HISTIOCYTOSIS HAEMATOPHAGIC

REACTIONS (3)
  - Alveolar proteinosis [Unknown]
  - Pulmonary arterial hypertension [Unknown]
  - Interstitial lung disease [Unknown]
